FAERS Safety Report 6251467-8 (Version None)
Quarter: 2009Q2

REPORT INFORMATION
  Report Type: 
  Country: None (occurrence: None)
  Receive Date: 20090630
  Receipt Date: 20090626
  Transmission Date: 20091009
  Serious: Yes (Death, Hospitalization, Other)
  Sender: FDA-Public Use
  Company Number: PHHY2009BR26113

PATIENT
  Sex: Female

DRUGS (2)
  1. DIOVAN HCT [Suspect]
     Indication: HYPERTENSION
     Dosage: 80/12.5 MG, 1 TABLET DAILY
     Route: 048
     Dates: start: 20050601, end: 20090101
  2. CENTRUM [Concomitant]
     Indication: VITAMIN SUPPLEMENTATION
     Dosage: 1 TABLET DAILY
     Route: 048

REACTIONS (5)
  - DYSPNOEA [None]
  - HAEMORRHAGE [None]
  - PNEUMONIA [None]
  - SENILE DEMENTIA [None]
  - SHOCK HAEMORRHAGIC [None]
